FAERS Safety Report 7771795-4 (Version None)
Quarter: 2011Q3

REPORT INFORMATION
  Report Type: 
  Country: None (occurrence: None)
  Receive Date: 20110922
  Receipt Date: 20110916
  Transmission Date: 20111222
  Serious: Yes (Life-Threatening, Hospitalization, Other)
  Sender: FDA-Public Use
  Company Number: US-ELI_LILLY_AND_COMPANY-US201105007639

PATIENT
  Sex: Female

DRUGS (12)
  1. HUMALOG MIX 75/25 [Suspect]
     Dosage: UNK, PRN
  2. HUMALOG MIX 75/25 [Suspect]
     Dosage: 55 U, BID
  3. HUMALOG MIX 75/25 [Suspect]
     Dosage: UNK, PRN
  4. HUMALOG MIX 75/25 [Suspect]
     Dosage: 80 U, BID
  5. HUMALOG MIX 75/25 [Suspect]
     Dosage: 65 U, UNKNOWN
  6. HUMALOG MIX 75/25 [Suspect]
     Indication: DIABETES MELLITUS
     Dosage: 80 U, BID
  7. PREVEX [Concomitant]
     Dosage: UNK
  8. HUMALOG MIX 75/25 [Suspect]
     Dosage: 55 U, BID
  9. ANTIHYPERTENSIVES [Concomitant]
     Indication: BLOOD PRESSURE INCREASED
     Dosage: UNK
  10. HUMALOG MIX 75/25 [Suspect]
     Dosage: 65 U, UNKNOWN
  11. ORAL ANTIDIABETICS [Concomitant]
     Dosage: UNK
  12. GLUCOTROL [Concomitant]
     Dosage: UNK

REACTIONS (8)
  - LOSS OF CONSCIOUSNESS [None]
  - ASTHENIA [None]
  - KNEE ARTHROPLASTY [None]
  - ARTHRALGIA [None]
  - PAIN IN EXTREMITY [None]
  - ANXIETY [None]
  - LIGAMENT SPRAIN [None]
  - MYOCARDIAL INFARCTION [None]
